FAERS Safety Report 4522599-7 (Version None)
Quarter: 2004Q4

REPORT INFORMATION
  Report Type: 
  Country: None (occurrence: None)
  Receive Date: 20041207
  Receipt Date: 20041119
  Transmission Date: 20050328
  Serious: Yes (Hospitalization)
  Sender: FDA-Public Use
  Company Number: EWC041141522

PATIENT
  Age: 70 Year
  Sex: Male

DRUGS (9)
  1. PERMAX [Suspect]
     Indication: PARKINSON'S DISEASE
     Dosage: 3 MG
     Dates: start: 19980512, end: 20021015
  2. TOLCAPONE [Concomitant]
  3. MADOPARK QUICK [Concomitant]
  4. SIFROL (PRAMIPEXOLE DIHYDROCHLORIDE) [Concomitant]
  5. EMOCONCOR (BISOPROLOL) [Concomitant]
  6. RAMIPRIL [Concomitant]
  7. FUROSEMIDE [Concomitant]
  8. PROSCAR [Concomitant]
  9. SINEMET DEPOT [Concomitant]

REACTIONS (8)
  - CARDIAC FAILURE [None]
  - DIARRHOEA [None]
  - HAEMOGLOBIN DECREASED [None]
  - PLEURISY [None]
  - PNEUMONIA [None]
  - PULMONARY OEDEMA [None]
  - RED BLOOD CELL SEDIMENTATION RATE INCREASED [None]
  - SPINAL FRACTURE [None]
